FAERS Safety Report 20119597 (Version 4)
Quarter: 2022Q1

REPORT INFORMATION
  Report Type: Report from Study
  Country: AU (occurrence: AU)
  Receive Date: 20211126
  Receipt Date: 20220214
  Transmission Date: 20220423
  Serious: Yes (Disabling)
  Sender: FDA-Public Use
  Company Number: AU-NOVARTISPH-NVSC2021AU261799

PATIENT
  Age: 14 Year
  Weight: 97.3 kg

DRUGS (5)
  1. TRAMETINIB [Suspect]
     Active Substance: TRAMETINIB
     Indication: Glioma
     Dosage: 2 MG, QD
     Route: 048
     Dates: start: 20210816, end: 20211020
  2. TRAMETINIB [Suspect]
     Active Substance: TRAMETINIB
     Indication: Gene mutation
     Dosage: UNK
     Route: 065
     Dates: start: 20210816, end: 20211105
  3. TRAMETINIB [Suspect]
     Active Substance: TRAMETINIB
     Dosage: 0.5 MG, QD (STRENGTH :2 MG)
     Route: 048
  4. DEXAMETHASONE [Concomitant]
     Active Substance: DEXAMETHASONE
     Indication: Product used for unknown indication
     Dosage: 3 MG, QD
     Route: 048
     Dates: start: 20210608, end: 20211020
  5. BEVACIZUMAB [Concomitant]
     Active Substance: BEVACIZUMAB
     Indication: Product used for unknown indication
     Dosage: 5 MG/KG, BIW (2 X WEEKLY)
     Route: 065
     Dates: start: 20210809, end: 20210920

REACTIONS (2)
  - Skin ulcer [Recovering/Resolving]
  - Skin degenerative disorder [Not Recovered/Not Resolved]

NARRATIVE: CASE EVENT DATE: 20211004
